FAERS Safety Report 6413208-0 (Version None)
Quarter: 2009Q4

REPORT INFORMATION
  Report Type: 
  Country: None (occurrence: None)
  Receive Date: 20091026
  Receipt Date: 20091019
  Transmission Date: 20100525
  Serious: Yes (Death, Hospitalization)
  Sender: FDA-Public Use
  Company Number: PHHY2009BR26810

PATIENT
  Age: 79 Year
  Sex: Female
  Weight: 65 kg

DRUGS (5)
  1. FORADIL [Suspect]
     Indication: DYSPNOEA
     Dosage: 1 INHALATION/DAY
     Dates: start: 19960101, end: 20090101
  2. MIFLASONE [Suspect]
     Indication: DYSPNOEA
     Dosage: 1 INHALATION/DAY
     Dates: start: 19960101, end: 20090101
  3. DORFLEX [Concomitant]
     Indication: HEADACHE
     Dosage: UNK
  4. ATENOLOL [Concomitant]
     Indication: HYPERTENSION
     Dosage: 1 TABLET/DAY
     Route: 048
  5. ENALAPRIL MALEATE [Concomitant]
     Indication: HYPERTENSION
     Dosage: 1 TABLET/DAY
     Route: 048

REACTIONS (2)
  - DEATH [None]
  - DYSPNOEA [None]
